FAERS Safety Report 4580149-3 (Version None)
Quarter: 2005Q1

REPORT INFORMATION
  Report Type: 
  Country: None (occurrence: None)
  Receive Date: 20050127
  Receipt Date: 20040928
  Transmission Date: 20050727
  Serious: No
  Sender: FDA-Public Use
  Company Number: USA040979533

PATIENT
  Age: 8 Year
  Sex: Male
  Weight: 27 kg

DRUGS (3)
  1. STRATTERA [Suspect]
     Indication: ATTENTION DEFICIT/HYPERACTIVITY DISORDER
     Dosage: 30 MG DAY
     Dates: start: 20030101
  2. RISPERDAL [Concomitant]
  3. TEGRETOL [Concomitant]

REACTIONS (2)
  - LABORATORY TEST ABNORMAL [None]
  - METAL POISONING [None]
